FAERS Safety Report 20577390 (Version 1)
Quarter: 2022Q1

REPORT INFORMATION
  Report Type: Spontaneous
  Country: US (occurrence: None)
  Receive Date: 20220310
  Receipt Date: 20220310
  Transmission Date: 20220424
  Serious: Yes (Hospitalization)
  Sender: FDA-Public Use
  Company Number: None

PATIENT
  Age: 81 Year
  Sex: Male
  Weight: 68.5 kg

DRUGS (3)
  1. DARATUMUMAB [Suspect]
     Active Substance: DARATUMUMAB
     Dates: end: 20220301
  2. DEXAMETHASONE [Suspect]
     Active Substance: DEXAMETHASONE
     Dates: end: 20220301
  3. LENALIDOMIDE [Suspect]
     Active Substance: LENALIDOMIDE
     Dates: end: 20220301

REACTIONS (10)
  - Dysphagia [None]
  - Oesophagitis [None]
  - Pyrexia [None]
  - Chills [None]
  - Productive cough [None]
  - Enterobacter infection [None]
  - Pneumonia [None]
  - Procalcitonin decreased [None]
  - Complication associated with device [None]
  - Medical device site cellulitis [None]

NARRATIVE: CASE EVENT DATE: 20220301
